FAERS Safety Report 5976811-8 (Version None)
Quarter: 2008Q4

REPORT INFORMATION
  Report Type: 
  Country: None (occurrence: None)
  Receive Date: 20081201
  Receipt Date: 20081201
  Transmission Date: 20090506
  Serious: Yes (Other)
  Sender: FDA-Public Use
  Company Number: None

PATIENT
  Sex: Female
  Weight: 83.9154 kg

DRUGS (1)
  1. LAMOTRIGINE [Suspect]
     Dosage: 100MG 1 1/2 QD ORAL
     Route: 048

REACTIONS (7)
  - AFFECTIVE DISORDER [None]
  - DIZZINESS [None]
  - LETHARGY [None]
  - MALAISE [None]
  - PRODUCT QUALITY ISSUE [None]
  - PSYCHIATRIC DECOMPENSATION [None]
  - TACHYCARDIA [None]
